FAERS Safety Report 4553051-0 (Version None)
Quarter: 2005Q1

REPORT INFORMATION
  Report Type: 
  Country: None (occurrence: None)
  Receive Date: 20050114
  Receipt Date: 20050106
  Transmission Date: 20050727
  Serious: Yes (Hospitalization)
  Sender: FDA-Public Use
  Company Number: PHRM2005FR00487

PATIENT
  Age: 84 Year
  Sex: Female

DRUGS (6)
  1. TRIVASTAL [Suspect]
     Indication: ESSENTIAL HYPERTENSION
     Dosage: 50 MG, TID
     Route: 048
     Dates: end: 20041014
  2. LASILIX [Suspect]
     Indication: ESSENTIAL HYPERTENSION
     Dosage: 20 MG, QD
     Route: 048
     Dates: end: 20041017
  3. RISPERDAL [Concomitant]
     Indication: DYSTHYMIC DISORDER
     Dosage: UNK, UNK
     Route: 048
  4. NITRIDERM TTS [Concomitant]
     Indication: MYOCARDIAL INFARCTION
     Dosage: 5 MG/24HRS
     Route: 062
  5. CORDARONE [Concomitant]
     Indication: ATRIAL FIBRILLATION
     Dosage: UNK, UNK
     Route: 048
  6. NISIS [Suspect]
     Indication: ESSENTIAL HYPERTENSION
     Dosage: 1 DF, QD
     Route: 048
     Dates: end: 20041014

REACTIONS (5)
  - BLOOD PRESSURE ORTHOSTATIC DECREASED [None]
  - LEUKOCYTOSIS [None]
  - LOSS OF CONSCIOUSNESS [None]
  - MALAISE [None]
  - ORTHOSTATIC HYPOTENSION [None]
